FAERS Safety Report 13100775 (Version 6)
Quarter: 2020Q2

REPORT INFORMATION
  Report Type: Spontaneous
  Country: CA (occurrence: CA)
  Receive Date: 20170110
  Receipt Date: 20200521
  Transmission Date: 20200713
  Serious: Yes (Other)
  Sender: FDA-Public Use
  Company Number: CA-ROCHE-1877150

PATIENT
  Sex: Female

DRUGS (62)
  1. ENBREL [Suspect]
     Active Substance: ETANERCEPT
     Dosage: DURATION 730 DAYS
     Route: 065
  2. CERTOLIZUMAB [Suspect]
     Active Substance: CERTOLIZUMAB
     Route: 065
  3. INFLIXIMAB [Suspect]
     Active Substance: INFLIXIMAB
     Indication: RHEUMATOID ARTHRITIS
     Route: 042
  4. PREDNISONE. [Concomitant]
     Active Substance: PREDNISONE
  5. ARAVA [Suspect]
     Active Substance: LEFLUNOMIDE
     Route: 048
  6. CICLOSPORIN [Suspect]
     Active Substance: CYCLOSPORINE
     Indication: RHEUMATOID ARTHRITIS
     Dosage: DOSE AND FREQUENCY UNKNOWN.
     Route: 048
  7. METHOTREXATE. [Suspect]
     Active Substance: METHOTREXATE
     Indication: RHEUMATOID ARTHRITIS
     Route: 065
  8. METHOTREXATE. [Suspect]
     Active Substance: METHOTREXATE
     Route: 042
  9. PLAQUENIL [Suspect]
     Active Substance: HYDROXYCHLOROQUINE SULFATE
     Indication: RHEUMATOID ARTHRITIS
     Dosage: DOSE AND FREQUENCY UNKNOWN
     Route: 048
  10. CYCLOSPORINE. [Suspect]
     Active Substance: CYCLOSPORINE
     Route: 065
  11. ORENCIA [Suspect]
     Active Substance: ABATACEPT
     Indication: PRODUCT USED FOR UNKNOWN INDICATION
     Route: 065
  12. GOLD [Suspect]
     Active Substance: GOLD
     Indication: RHEUMATOID ARTHRITIS
     Route: 065
  13. ACTEMRA [Suspect]
     Active Substance: TOCILIZUMAB
     Indication: PRODUCT USED FOR UNKNOWN INDICATION
     Route: 065
     Dates: start: 201103
  14. ACTEMRA [Suspect]
     Active Substance: TOCILIZUMAB
     Route: 065
  15. RITUXIMAB. [Suspect]
     Active Substance: RITUXIMAB
     Indication: PRODUCT USED FOR UNKNOWN INDICATION
     Route: 042
  16. ENBREL [Suspect]
     Active Substance: ETANERCEPT
     Dosage: 08/--/2002 TO 05/--/2005
     Route: 065
  17. METHOTREXATE. [Suspect]
     Active Substance: METHOTREXATE
     Route: 058
  18. CERTOLIZUMAB [Suspect]
     Active Substance: CERTOLIZUMAB
     Indication: PRODUCT USED FOR UNKNOWN INDICATION
     Route: 065
     Dates: start: 201007, end: 201103
  19. METHOTREXATE SODIUM. [Suspect]
     Active Substance: METHOTREXATE SODIUM
     Indication: RHEUMATOID ARTHRITIS
     Dosage: DOSE AND FREQUENCY UNKNOWN.
     Route: 065
  20. VARICELLA ZOSTER VACCINE LIVE [Suspect]
     Active Substance: VARICELLA-ZOSTER VIRUS STRAIN OKA/MERCK LIVE ANTIGEN
     Indication: PRODUCT USED FOR UNKNOWN INDICATION
     Route: 058
  21. PIROXICAM. [Concomitant]
     Active Substance: PIROXICAM
  22. ACTEMRA [Suspect]
     Active Substance: TOCILIZUMAB
     Route: 065
  23. HUMIRA [Suspect]
     Active Substance: ADALIMUMAB
     Route: 058
  24. REMICADE [Suspect]
     Active Substance: INFLIXIMAB
     Indication: RHEUMATOID ARTHRITIS
     Route: 042
     Dates: start: 200509, end: 200701
  25. SIMPONI [Suspect]
     Active Substance: GOLIMUMAB
     Indication: PRODUCT USED FOR UNKNOWN INDICATION
     Route: 065
  26. ACTEMRA [Suspect]
     Active Substance: TOCILIZUMAB
     Route: 065
  27. ACTEMRA [Suspect]
     Active Substance: TOCILIZUMAB
     Indication: RHEUMATOID ARTHRITIS
     Route: 042
  28. CIMZIA [Suspect]
     Active Substance: CERTOLIZUMAB PEGOL
     Indication: RHEUMATOID ARTHRITIS
     Route: 058
  29. HUMIRA [Suspect]
     Active Substance: ADALIMUMAB
     Route: 065
  30. APO-HYDROXYQUINE [Suspect]
     Active Substance: HYDROXYCHLOROQUINE SULFATE
     Indication: RHEUMATOID ARTHRITIS
     Dosage: DOSE AND FREQUENCY UNKNOWN.
     Route: 065
  31. CYCLOSPORINE. [Suspect]
     Active Substance: CYCLOSPORINE
     Indication: RHEUMATOID ARTHRITIS
     Dosage: DOSE AND FREQUENCY UNKNOWN
     Route: 048
  32. LYRICA [Suspect]
     Active Substance: PREGABALIN
     Indication: PRODUCT USED FOR UNKNOWN INDICATION
     Route: 065
  33. APO-AZATHIOPRINE [Suspect]
     Active Substance: AZATHIOPRINE
     Indication: RHEUMATOID ARTHRITIS
     Route: 065
  34. INFLIXIMAB [Suspect]
     Active Substance: INFLIXIMAB
     Route: 042
  35. ENBREL [Suspect]
     Active Substance: ETANERCEPT
     Indication: RHEUMATOID ARTHRITIS
     Route: 065
     Dates: start: 200208, end: 200505
  36. CIMZIA [Suspect]
     Active Substance: CERTOLIZUMAB PEGOL
     Route: 065
  37. HUMIRA [Suspect]
     Active Substance: ADALIMUMAB
     Indication: RHEUMATOID ARTHRITIS
     Route: 058
     Dates: start: 200701, end: 201006
  38. IMURAN [Suspect]
     Active Substance: AZATHIOPRINE
     Indication: RHEUMATOID ARTHRITIS
     Dosage: DOSE AND FREQUENCY UNKNOWN
     Route: 065
  39. SULFASALAZINE. [Suspect]
     Active Substance: SULFASALAZINE
     Indication: RHEUMATOID ARTHRITIS
     Dosage: DOSE AND FREQUENCY UNKNOWN.
     Route: 065
  40. CYCLOSPORINE. [Suspect]
     Active Substance: CYCLOSPORINE
     Route: 065
  41. APO-LEFLUNOMIDE [Suspect]
     Active Substance: LEFLUNOMIDE
     Indication: PRODUCT USED FOR UNKNOWN INDICATION
     Route: 065
  42. MYCOPHENOLATE MOFETIL. [Suspect]
     Active Substance: MYCOPHENOLATE MOFETIL
     Indication: PRODUCT USED FOR UNKNOWN INDICATION
     Route: 065
  43. CIMZIA [Suspect]
     Active Substance: CERTOLIZUMAB PEGOL
     Route: 058
  44. HUMIRA [Suspect]
     Active Substance: ADALIMUMAB
     Route: 058
  45. HYDROXYCHLOROQUINE [Suspect]
     Active Substance: HYDROXYCHLOROQUINE
     Route: 065
  46. REMICADE [Suspect]
     Active Substance: INFLIXIMAB
     Route: 042
  47. METHOTREXATE. [Suspect]
     Active Substance: METHOTREXATE
     Route: 065
  48. CYCLOSPORINE. [Suspect]
     Active Substance: CYCLOSPORINE
     Route: 048
  49. RITUXAN [Suspect]
     Active Substance: RITUXIMAB
     Indication: PRODUCT USED FOR UNKNOWN INDICATION
     Route: 065
  50. ARAVA [Suspect]
     Active Substance: LEFLUNOMIDE
     Indication: RHEUMATOID ARTHRITIS
     Dosage: DOSE AND FREQUENCY UNKNOWN.
     Route: 048
  51. ARAVA [Suspect]
     Active Substance: LEFLUNOMIDE
     Route: 065
  52. HUMIRA [Suspect]
     Active Substance: ADALIMUMAB
     Route: 058
  53. HYDROXYCHLOROQUINE [Suspect]
     Active Substance: HYDROXYCHLOROQUINE
     Indication: RHEUMATOID ARTHRITIS
     Dosage: DOSE AND FREQUENCY UNKNOWN.
     Route: 065
  54. HYDROXYCHLOROQUINE [Suspect]
     Active Substance: HYDROXYCHLOROQUINE
     Route: 065
  55. HYDROXYCHLOROQUINE [Suspect]
     Active Substance: HYDROXYCHLOROQUINE
     Route: 065
  56. SULFASALAZINE. [Suspect]
     Active Substance: SULFASALAZINE
     Route: 065
  57. METHOTREXATE. [Suspect]
     Active Substance: METHOTREXATE
     Route: 048
  58. METHOTREXATE. [Suspect]
     Active Substance: METHOTREXATE
     Route: 065
  59. PLAQUENIL [Suspect]
     Active Substance: HYDROXYCHLOROQUINE SULFATE
     Route: 065
  60. CERTOLIZUMAB [Suspect]
     Active Substance: CERTOLIZUMAB
     Route: 065
  61. AZATHIOPRINE. [Suspect]
     Active Substance: AZATHIOPRINE
     Indication: RHEUMATOID ARTHRITIS
     Dosage: DOSE AND FREQUENCY UNKNOWN.
     Route: 065
  62. SODIUM AUROTHIOMALATE [Suspect]
     Active Substance: GOLD SODIUM THIOMALATE
     Indication: RHEUMATOID ARTHRITIS
     Route: 065

REACTIONS (26)
  - Blood iron abnormal [Unknown]
  - Disease progression [Unknown]
  - Nausea [Not Recovered/Not Resolved]
  - Therapeutic product effect incomplete [Not Recovered/Not Resolved]
  - Hypersensitivity [Not Recovered/Not Resolved]
  - Sinusitis [Not Recovered/Not Resolved]
  - Treatment failure [Not Recovered/Not Resolved]
  - Weight decreased [Not Recovered/Not Resolved]
  - Psoriatic arthropathy [Unknown]
  - Sciatica [Unknown]
  - Treatment failure [Unknown]
  - Diarrhoea [Not Recovered/Not Resolved]
  - Stomatitis [Not Recovered/Not Resolved]
  - Rheumatoid arthritis [Unknown]
  - Drug hypersensitivity [Unknown]
  - Contraindicated product administered [Unknown]
  - Laryngeal disorder [Not Recovered/Not Resolved]
  - Product use issue [Unknown]
  - Drug intolerance [Unknown]
  - Sinusitis [Unknown]
  - Off label use [Unknown]
  - Drug ineffective [Unknown]
  - Pruritus [Not Recovered/Not Resolved]
  - Condition aggravated [Unknown]
  - Therapeutic product effect incomplete [Unknown]
  - Rash [Unknown]
